FAERS Safety Report 10200654 (Version 1)
Quarter: 2014Q2

REPORT INFORMATION
  Report Type: Spontaneous
  Country: US (occurrence: US)
  Receive Date: 20140528
  Receipt Date: 20140528
  Transmission Date: 20141212
  Serious: No
  Sender: FDA-Public Use
  Company Number: US-TEVA-450999USA

PATIENT
  Age: 25 Year
  Sex: Female
  Weight: 54.48 kg

DRUGS (1)
  1. CAMRESE [Suspect]
     Indication: CONTRACEPTION
     Route: 048

REACTIONS (4)
  - Vaginal haemorrhage [Not Recovered/Not Resolved]
  - Metrorrhagia [Recovered/Resolved]
  - Drug dose omission [Unknown]
  - Metrorrhagia [Recovered/Resolved]
